FAERS Safety Report 8788853 (Version 2)
Quarter: 2013Q4

REPORT INFORMATION
  Report Type: Spontaneous
  Country: US (occurrence: US)
  Receive Date: 20120916
  Receipt Date: 20131101
  Transmission Date: 20140711
  Serious: Yes (Other)
  Sender: FDA-Public Use
  Company Number: US-009507513-1209USA003938

PATIENT
  Age: 27 Year
  Sex: Male

DRUGS (3)
  1. ISENTRESS [Suspect]
     Route: 048
  2. PREZISTA [Suspect]
     Route: 048
  3. NORVIR [Suspect]
     Route: 048

REACTIONS (1)
  - Blood creatine phosphokinase increased [Unknown]
